FAERS Safety Report 8840452 (Version 1)
Quarter: 2012Q4

REPORT INFORMATION
  Report Type: 
  Country: US (occurrence: US)
  Receive Date: 20121015
  Receipt Date: 20121015
  Transmission Date: 20130627
  Serious: Yes (Death, Other)
  Sender: FDA-Public Use
  Company Number: US-ROCHE-1111140

PATIENT
  Sex: Male

DRUGS (2)
  1. NUTROPIN [Suspect]
     Indication: PRODUCT USED FOR UNKNOWN INDICATION
  2. INOTROPIC AGENT [Concomitant]

REACTIONS (3)
  - Congestive cardiomyopathy [Unknown]
  - Cardiac failure congestive [Unknown]
  - Death [Fatal]
